FAERS Safety Report 9859968 (Version 1)
Quarter: 2014Q1

REPORT INFORMATION
  Report Type: Spontaneous
  Country: US (occurrence: US)
  Receive Date: 20140131
  Receipt Date: 20140131
  Transmission Date: 20141002
  Serious: No
  Sender: FDA-Public Use
  Company Number: US-009507513-1312USA003168

PATIENT
  Age: 53 Year
  Sex: Female

DRUGS (4)
  1. CLARITIN-D-24 [Suspect]
     Indication: SINUS HEADACHE
     Dosage: UNK, UNKNOWN
     Route: 048
  2. CLARITIN-D-24 [Suspect]
     Indication: HEADACHE
  3. IBUPROFEN [Concomitant]
     Indication: HEADACHE
     Dosage: UNK, UNKNOWN
     Dates: start: 201311
  4. IBUPROFEN [Concomitant]
     Indication: SINUS HEADACHE

REACTIONS (3)
  - Oropharyngeal pain [Unknown]
  - Unevaluable event [Unknown]
  - Therapeutic response unexpected [Unknown]
